FAERS Safety Report 9353475 (Version 1)
Quarter: 2013Q2

REPORT INFORMATION
  Report Type: Spontaneous
  Country: US (occurrence: None)
  Receive Date: 20130617
  Receipt Date: 20130617
  Transmission Date: 20140414
  Serious: Yes (Hospitalization)
  Sender: FDA-Public Use
  Company Number: None

PATIENT
  Age: 60 Year
  Sex: Female

DRUGS (2)
  1. PEGASYS PROCLICK [Suspect]
     Indication: CHRONIC HEPATITIS C
     Route: 058
     Dates: start: 20130109, end: 201305
  2. RIBAVIRIN [Suspect]
     Indication: CHRONIC HEPATITIS C
     Dosage: 1/9/2014 TO 05/2013?600MG TWICE ADAY, ORAL.

REACTIONS (1)
  - Rash generalised [None]
